FAERS Safety Report 5128766-6 (Version None)
Quarter: 2006Q4

REPORT INFORMATION
  Report Type: 
  Country: None (occurrence: None)
  Receive Date: 20061017
  Receipt Date: 20060906
  Transmission Date: 20070319
  Serious: Yes (Life-Threatening)
  Sender: FDA-Public Use
  Company Number: JP-BRISTOL-MYERS SQUIBB COMPANY-13501010

PATIENT
  Age: 59 Year
  Sex: Female

DRUGS (20)
  1. PARAPLATIN [Suspect]
     Indication: OVARIAN CANCER
     Route: 041
     Dates: start: 20050531, end: 20050531
  2. TAXOL [Concomitant]
     Indication: OVARIAN CANCER
     Route: 041
     Dates: end: 20050531
  3. DEXART [Concomitant]
     Indication: PREMEDICATION
     Route: 042
     Dates: start: 20050530, end: 20050531
  4. KYTRIL [Concomitant]
     Route: 041
     Dates: start: 20060531, end: 20060531
  5. ZANTAC [Concomitant]
     Indication: PREMEDICATION
     Route: 041
     Dates: end: 20050531
  6. VOLTAREN [Concomitant]
     Route: 048
  7. ALOSENN [Concomitant]
     Route: 048
  8. MAGNESIUM [Concomitant]
     Route: 048
  9. DORAL [Concomitant]
     Route: 048
  10. ZOLPIDEM TARTRATE [Concomitant]
     Route: 048
  11. MUCOSTA [Concomitant]
     Route: 048
  12. AZELASTINE HCL [Concomitant]
     Route: 048
  13. THEOPHYLLINE [Concomitant]
     Route: 048
  14. MYONAL [Concomitant]
     Route: 048
  15. ONEALFA [Concomitant]
     Route: 048
  16. RIZE [Concomitant]
     Route: 048
  17. FOLIAMIN [Concomitant]
  18. CYANOCOBALAMIN [Concomitant]
  19. HEPARIN LOCK-FLUSH [Concomitant]
     Route: 042
     Dates: start: 20060530, end: 20060530
  20. VENA [Concomitant]
     Route: 048
     Dates: start: 20060531, end: 20060531

REACTIONS (1)
  - HYPERSENSITIVITY [None]
